FAERS Safety Report 6106570-X (Version None)
Quarter: 2009Q1

REPORT INFORMATION
  Report Type: 
  Country: None (occurrence: None)
  Receive Date: 20090304
  Receipt Date: 20090219
  Transmission Date: 20090719
  Serious: Yes (Death, Hospitalization, Other)
  Sender: FDA-Public Use
  Company Number: 2009-00485

PATIENT
  Age: 74 Year
  Sex: Male
  Weight: 56 kg

DRUGS (17)
  1. VELCADE [Suspect]
     Indication: MANTLE CELL LYMPHOMA
     Dosage: 2 MG, UNK, INTRAVENOUS
     Route: 042
     Dates: start: 20080822, end: 20081031
  2. MABTHERA (RITUXIMAB) INJECTION [Suspect]
     Indication: MANTLE CELL LYMPHOMA
     Dosage: 750 MG/M2 UNK INTRAVENOUS
     Route: 042
     Dates: start: 20080829, end: 20081031
  3. NEUPOGEN [Suspect]
     Indication: PROPHYLAXIS
     Dosage: 300 UG UNK UNK
     Route: 042
     Dates: start: 20080829, end: 20080903
  4. CHLORAMBUCIL (CHLORAMBUCIL) OR [Suspect]
     Indication: MANTLE CELL LYMPHOMA
     Dosage: 12 MG UNK UNK
     Dates: start: 20080910, end: 20081031
  5. DEXAMETHASONE TAB [Suspect]
     Indication: MANTLE CELL LYMPHOMA
     Dosage: UNK UNK INTRAVENOUS; 20 MG UNK UNK
     Route: 042
     Dates: start: 20080822, end: 20080825
  6. DEXAMETHASONE TAB [Suspect]
     Indication: MANTLE CELL LYMPHOMA
     Dosage: UNK UNK INTRAVENOUS; 20 MG UNK UNK
     Route: 042
     Dates: end: 20081031
  7. DOXORUBICIN HCL [Suspect]
     Indication: MANTLE CELL LYMPHOMA
     Dosage: 18 MG/M2 UNK INTRAVENOUS
     Route: 042
     Dates: end: 20081031
  8. LEVOFLOXACIN [Concomitant]
  9. AMOXICILLIN [Concomitant]
  10. OXYCODONE HCL [Concomitant]
  11. EPREX [Concomitant]
  12. HEXTRIL (HEXETIDINE) [Concomitant]
  13. ESOMEPRAZOLE MAGNESIUM [Concomitant]
  14. DOMPERIDONE (DOMPERIDONE) [Concomitant]
  15. TADENAN (PYGEUM AFRICANUM) [Concomitant]
  16. CHLORAMINOPHENE [Concomitant]
  17. VALACYCLOVIR HCL [Concomitant]

REACTIONS (5)
  - ASTHENIA [None]
  - DISEASE PROGRESSION [None]
  - ENCEPHALITIS [None]
  - GENERAL PHYSICAL HEALTH DETERIORATION [None]
  - METASTASES TO MENINGES [None]
